FAERS Safety Report 20216048 (Version 3)
Quarter: 2022Q1

REPORT INFORMATION
  Report Type: Report from Study
  Country: US (occurrence: US)
  Receive Date: 20211222
  Receipt Date: 20220103
  Transmission Date: 20220423
  Serious: Yes (Hospitalization, Other)
  Sender: FDA-Public Use
  Company Number: US-NOVARTISPH-NVSC2021US288646

PATIENT
  Sex: Male

DRUGS (1)
  1. XIIDRA [Suspect]
     Active Substance: LIFITEGRAST
     Indication: Dry eye
     Dosage: 5% SOLUTION, BID (FOR BOTH EYES)
     Route: 047
     Dates: start: 202101

REACTIONS (5)
  - Fall [Unknown]
  - Cerebral haemorrhage [Unknown]
  - Brain oedema [Unknown]
  - Head injury [Unknown]
  - Inflammation [Unknown]
